FAERS Safety Report 15404052 (Version 1)
Quarter: 2018Q3

REPORT INFORMATION
  Report Type: Spontaneous
  Country: US (occurrence: US)
  Receive Date: 20180919
  Receipt Date: 20180919
  Transmission Date: 20181010
  Serious: No
  Sender: FDA-Public Use
  Company Number: US-AVADEL SPECIALTY PHARMACEUTICALS, LLC-2018AVA00103

PATIENT
  Age: 69 Year
  Sex: Female
  Weight: 62.13 kg

DRUGS (10)
  1. MESTINON [Concomitant]
     Active Substance: PYRIDOSTIGMINE BROMIDE
  2. ATORVASTATIN [Concomitant]
     Active Substance: ATORVASTATIN
  3. BACLOFEN. [Concomitant]
     Active Substance: BACLOFEN
  4. CLONAZEPAM. [Concomitant]
     Active Substance: CLONAZEPAM
  5. HYDROXYZINE HCL [Concomitant]
     Active Substance: HYDROXYZINE HYDROCHLORIDE
  6. TACROLIMUS. [Concomitant]
     Active Substance: TACROLIMUS
  7. NOCTIVA [Suspect]
     Active Substance: DESMOPRESSIN ACETATE
     Indication: NOCTURIA
     Dosage: .83 ?G, 1X/DAY IN RIGHT NOSTRIL 30 MINUTES BEFORE BED
     Route: 045
     Dates: start: 20180614
  8. OMEPRAZOLE. [Concomitant]
     Active Substance: OMEPRAZOLE
  9. VIIBRYD [Concomitant]
     Active Substance: VILAZODONE HYDROCHLORIDE
  10. ERYTHROMYCIN OPHTHALMIC OINTMENT [Concomitant]
     Active Substance: ERYTHROMYCIN
     Route: 047

REACTIONS (3)
  - Dyspnoea [Recovered/Resolved]
  - Parosmia [Not Recovered/Not Resolved]
  - Administration site paraesthesia [Recovered/Resolved]

NARRATIVE: CASE EVENT DATE: 20180614
